FAERS Safety Report 14757840 (Version 1)
Quarter: 2018Q2

REPORT INFORMATION
  Report Type: Spontaneous
  Country: CN (occurrence: CN)
  Receive Date: 20180413
  Receipt Date: 20180413
  Transmission Date: 20180711
  Serious: Yes (Hospitalization, Other)
  Sender: FDA-Public Use
  Company Number: CN-NOVOPROD-586031

PATIENT
  Age: 33 Year
  Sex: Female

DRUGS (2)
  1. NOVORAPID [Suspect]
     Active Substance: INSULIN ASPART
     Indication: GESTATIONAL DIABETES
     Dosage: 6 U, TID
     Route: 058
  2. LEVEMIR [Suspect]
     Active Substance: INSULIN DETEMIR
     Indication: GESTATIONAL DIABETES
     Dosage: 14 U, QD (BEFORE SLEEP)
     Route: 058

REACTIONS (9)
  - Exposure during pregnancy [Unknown]
  - Blood glucose increased [Unknown]
  - Palpitations [Recovering/Resolving]
  - Hyperhidrosis [Recovering/Resolving]
  - Product use complaint [Unknown]
  - Hypoglycaemia [Unknown]
  - Dyspnoea [Not Recovered/Not Resolved]
  - Diabetic ketoacidosis [Unknown]
  - Foetal death [Unknown]

NARRATIVE: CASE EVENT DATE: 20180211
